FAERS Safety Report 9540682 (Version 3)
Quarter: 2014Q3

REPORT INFORMATION
  Report Type: Spontaneous
  Country: JP (occurrence: JP)
  Receive Date: 20130920
  Receipt Date: 20140911
  Transmission Date: 20150326
  Serious: Yes (Hospitalization, Other)
  Sender: FDA-Public Use
  Company Number: JP-ASTRAZENECA-2013SE69436

PATIENT
  Age: 80 Year
  Sex: Female
  Weight: 57 kg

DRUGS (6)
  1. PENTAZOCINE [Concomitant]
     Active Substance: PENTAZOCINE
     Indication: ANALGESIC THERAPY
     Route: 042
  2. XYLOCAINE [Suspect]
     Active Substance: LIDOCAINE HYDROCHLORIDE
     Indication: ANAESTHESIA
  3. ANAPEINE [Suspect]
     Active Substance: ROPIVACAINE HYDROCHLORIDE
     Indication: ANAESTHESIA
     Dosage: 2 MG/ML, 30 MG
     Route: 053
  4. XYLOCAINE [Suspect]
     Active Substance: LIDOCAINE HYDROCHLORIDE
     Indication: ANAESTHESIA
     Route: 053
  5. FLURBIPROFEN. [Concomitant]
     Active Substance: FLURBIPROFEN
     Indication: ANALGESIC THERAPY
     Route: 042
  6. ANAPEINE [Suspect]
     Active Substance: ROPIVACAINE HYDROCHLORIDE
     Indication: ANAESTHESIA
     Route: 053

REACTIONS (5)
  - Depressed level of consciousness [Recovered/Resolved]
  - Atrioventricular block [Recovering/Resolving]
  - Toxicity to various agents [Unknown]
  - Overdose [Unknown]
  - Bradycardia [Unknown]
